FAERS Safety Report 19625862 (Version 2)
Quarter: 2021Q3

REPORT INFORMATION
  Report Type: Spontaneous
  Country: JP (occurrence: JP)
  Receive Date: 20210729
  Receipt Date: 20210805
  Transmission Date: 20211014
  Serious: Yes (Hospitalization)
  Sender: FDA-Public Use
  Company Number: JP-TEVA-2021-JP-1935725

PATIENT
  Age: 72 Year
  Sex: Female

DRUGS (14)
  1. CILOSTAZOL. [Suspect]
     Active Substance: CILOSTAZOL
     Indication: PROPHYLAXIS
     Dosage: 200 MILLIGRAM DAILY;
     Route: 065
  2. SALMETEROL XINAFOATE/FLUTICASONE PROPIONATE [Concomitant]
     Active Substance: FLUTICASONE PROPIONATE\SALMETEROL XINAFOATE
     Indication: ASTHMA
     Route: 055
  3. ERYTHROMYCIN. [Concomitant]
     Active Substance: ERYTHROMYCIN
     Indication: BRONCHITIS CHRONIC
     Route: 065
  4. BISOPROLOL [Suspect]
     Active Substance: BISOPROLOL
     Indication: SINUS TACHYCARDIA
     Dosage: .625 MILLIGRAM DAILY;
     Route: 065
  5. FUROSEMIDE. [Concomitant]
     Active Substance: FUROSEMIDE
     Indication: DIURETIC THERAPY
     Dosage: 20 MILLIGRAM DAILY; RECEIVED 10MG IV X2 PER DAY
     Route: 042
  6. FUROSEMIDE. [Concomitant]
     Active Substance: FUROSEMIDE
     Indication: PULMONARY CONGESTION
  7. SPIRONOLACTONE. [Concomitant]
     Active Substance: SPIRONOLACTONE
     Indication: DIURETIC THERAPY
     Route: 065
  8. CARBOCISTEINE [Concomitant]
     Active Substance: CARBOCYSTEINE
     Indication: BRONCHITIS CHRONIC
     Route: 065
  9. METHYLPREDNISOLONE. [Concomitant]
     Active Substance: METHYLPREDNISOLONE
     Indication: ASTHMA
     Route: 042
  10. SPIRONOLACTONE. [Concomitant]
     Active Substance: SPIRONOLACTONE
     Indication: PULMONARY CONGESTION
  11. AMBROXOL [Concomitant]
     Active Substance: AMBROXOL
     Indication: BRONCHITIS CHRONIC
     Route: 065
  12. AZOSEMIDE [Concomitant]
     Active Substance: AZOSEMIDE
     Indication: DIURETIC THERAPY
     Route: 065
  13. CLOPIDOGREL [Concomitant]
     Active Substance: CLOPIDOGREL BISULFATE
     Indication: PROPHYLAXIS
     Route: 065
  14. AZOSEMIDE [Concomitant]
     Active Substance: AZOSEMIDE
     Indication: PULMONARY CONGESTION

REACTIONS (6)
  - Sinus tachycardia [Recovered/Resolved]
  - Cardiac failure [Recovering/Resolving]
  - Pulmonary congestion [Recovering/Resolving]
  - Condition aggravated [Recovering/Resolving]
  - Hypotension [Recovered/Resolved]
  - Cardiomyopathy [Recovering/Resolving]
